FAERS Safety Report 24096653 (Version 1)
Quarter: 2024Q3

REPORT INFORMATION
  Report Type: Spontaneous
  Country: US (occurrence: None)
  Receive Date: 20240715
  Receipt Date: 20240715
  Transmission Date: 20241017
  Serious: Yes (Disabling)
  Sender: Public
  Company Number: None

PATIENT
  Age: 62 Year
  Sex: Female
  Weight: 55.35 kg

DRUGS (2)
  1. LUNESTA [Suspect]
     Active Substance: ESZOPICLONE
     Indication: Shift work disorder
     Dates: start: 20050501, end: 20210601
  2. Estradiol patch .005 [Concomitant]

REACTIONS (22)
  - Drug dependence [None]
  - Drug withdrawal syndrome [None]
  - Tremor [None]
  - Gastrointestinal pain [None]
  - Diarrhoea [None]
  - Balance disorder [None]
  - Rash [None]
  - Tinnitus [None]
  - Migraine [None]
  - Weight decreased [None]
  - Myalgia [None]
  - Gait disturbance [None]
  - Feeling abnormal [None]
  - Electric shock sensation [None]
  - Palpitations [None]
  - Anxiety [None]
  - Insomnia [None]
  - Headache [None]
  - Muscle tightness [None]
  - Musculoskeletal stiffness [None]
  - Arthralgia [None]
  - Abdominal distension [None]

NARRATIVE: CASE EVENT DATE: 20080601
